FAERS Safety Report 17747261 (Version 2)
Quarter: 2020Q3

REPORT INFORMATION
  Report Type: Report from Study
  Country: PL (occurrence: PL)
  Receive Date: 20200505
  Receipt Date: 20200515
  Transmission Date: 20201104
  Serious: Yes (Other)
  Sender: FDA-Public Use
  Company Number: PL-CELGENEUS-POL-20200202260

PATIENT
  Age: 59 Year
  Sex: Male
  Weight: 85.4 kg

DRUGS (7)
  1. SERMION [Concomitant]
     Active Substance: NICERGOLINE
     Indication: MULTIPLE SCLEROSIS
     Dosage: 30 MILLIGRAM
     Route: 048
     Dates: start: 20130510
  2. SIRDALUD 6 MR [Concomitant]
     Indication: MULTIPLE SCLEROSIS
     Dosage: 12 MILLIGRAM
     Route: 048
     Dates: start: 20150302
  3. ACARD [Concomitant]
     Active Substance: ASPIRIN
     Route: 065
  4. OZANIMOD. [Suspect]
     Active Substance: OZANIMOD
     Indication: MULTIPLE SCLEROSIS
     Dosage: 1 CAPSULE
     Route: 048
     Dates: start: 20161129, end: 20200128
  5. ACARD [Concomitant]
     Active Substance: ASPIRIN
     Indication: PRODUCT USED FOR UNKNOWN INDICATION
     Route: 065
  6. PREVENIT [Concomitant]
     Indication: PROPHYLAXIS
     Route: 048
     Dates: start: 20140601
  7. LUCETAM [Concomitant]
     Indication: MULTIPLE SCLEROSIS
     Dosage: 2400 MILLIGRAM
     Route: 048
     Dates: start: 20130510

REACTIONS (1)
  - Chronic myeloid leukaemia [Recovering/Resolving]

NARRATIVE: CASE EVENT DATE: 20191126
